FAERS Safety Report 16870124 (Version 2)
Quarter: 2019Q4

REPORT INFORMATION
  Report Type: Report from Study
  Country: IT (occurrence: IT)
  Receive Date: 20190930
  Receipt Date: 20191023
  Transmission Date: 20200122
  Serious: Yes (Death)
  Sender: FDA-Public Use
  Company Number: IT-EXELIXIS-XL18419024072

PATIENT
  Age: 41 Year
  Sex: Male
  Weight: 79 kg

DRUGS (8)
  1. TRANEXAMIC ACID. [Concomitant]
     Active Substance: TRANEXAMIC ACID
     Indication: RECTAL HAEMORRHAGE
     Route: 048
     Dates: start: 20190903, end: 20190905
  2. MORFINE CLORIDRATO [Concomitant]
     Indication: BONE PAIN
     Dosage: 20 MG, QD
     Route: 042
     Dates: start: 201903, end: 20190918
  3. DEXAMETHASONE. [Concomitant]
     Active Substance: DEXAMETHASONE
     Indication: BONE PAIN
     Dosage: 0.5 G, BID
     Route: 048
     Dates: start: 20190717, end: 20190918
  4. CABOZANTINIB [Suspect]
     Active Substance: CABOZANTINIB
     Indication: RENAL CELL CARCINOMA
     Dosage: 60 MG, QD
     Route: 048
     Dates: start: 20190719, end: 20190918
  5. PLACEBO [Suspect]
     Active Substance: UNSPECIFIED INGREDIENT
     Indication: RENAL CELL CARCINOMA
     Dosage: 800 MG, BID
     Route: 048
     Dates: start: 20190719, end: 20190919
  6. CLONAZEPAM. [Concomitant]
     Active Substance: CLONAZEPAM
     Indication: BONE PAIN
     Dosage: 2.5 MG/ML
     Route: 048
     Dates: start: 201903, end: 20190918
  7. ENOXAPARIN [Concomitant]
     Active Substance: ENOXAPARIN
     Indication: VENOUS THROMBOSIS
     Dosage: 4000 [IU], QD
     Route: 058
     Dates: start: 201812, end: 20190918
  8. PREGABALIN. [Concomitant]
     Active Substance: PREGABALIN
     Indication: BONE PAIN
     Dosage: 150 MG, BID
     Route: 048
     Dates: start: 201903, end: 20190918

REACTIONS (1)
  - Melaena [Fatal]

NARRATIVE: CASE EVENT DATE: 20190919
